FAERS Safety Report 22155487 (Version 1)
Quarter: 2023Q1

REPORT INFORMATION
  Report Type: Spontaneous
  Country: US (occurrence: US)
  Receive Date: 20230330
  Receipt Date: 20230330
  Transmission Date: 20230417
  Serious: No
  Sender: FDA-Public Use
  Company Number: US-drreddys-SPO/USA/23/0160935

PATIENT
  Age: 18 Year
  Sex: Female

DRUGS (1)
  1. ACCUTANE [Suspect]
     Active Substance: ISOTRETINOIN
     Indication: Acne cystic
     Dosage: 60 MG A DAY AT DIFFERENT TIMES
     Dates: start: 20220601, end: 20220926

REACTIONS (9)
  - Dehydration [Unknown]
  - Feeling hot [Unknown]
  - Gait inability [Unknown]
  - Liver function test decreased [Unknown]
  - Vomiting [Unknown]
  - Dizziness [Unknown]
  - Dysphagia [Unknown]
  - Fatigue [Unknown]
  - Product use in unapproved indication [Unknown]

NARRATIVE: CASE EVENT DATE: 20220601
